FAERS Safety Report 4664909-6 (Version None)
Quarter: 2005Q2

REPORT INFORMATION
  Report Type: 
  Country: None (occurrence: None)
  Receive Date: 20050517
  Receipt Date: 20050512
  Transmission Date: 20051028
  Serious: Yes (Hospitalization)
  Sender: FDA-Public Use
  Company Number: TPG2005A00149

PATIENT
  Age: 82 Year
  Sex: Male

DRUGS (1)
  1. TRENANTONE                 (LEUPROLIDE ACETATE) [Suspect]
     Indication: PROSTATE CANCER
     Dosage: 11.25 MG (11.25 MG 1 IN 3 M)
     Route: 058

REACTIONS (1)
  - CIRCULATORY COLLAPSE [None]
